APPROVED DRUG PRODUCT: MINZOYA
Active Ingredient: ETHINYL ESTRADIOL; LEVONORGESTREL
Strength: 0.02MG;0.1MG
Dosage Form/Route: TABLET;ORAL
Application: A217087 | Product #001 | TE Code: AB3
Applicant: LUPIN LTD
Approved: Feb 15, 2024 | RLD: No | RS: No | Type: RX